FAERS Safety Report 20791563 (Version 3)
Quarter: 2024Q2

REPORT INFORMATION
  Report Type: Spontaneous
  Country: AT (occurrence: AT)
  Receive Date: 20220505
  Receipt Date: 20240416
  Transmission Date: 20240716
  Serious: Yes (Death, Other)
  Sender: FDA-Public Use
  Company Number: AT-GILEAD-2022-0580542

PATIENT
  Sex: Female

DRUGS (3)
  1. YESCARTA [Suspect]
     Active Substance: AXICABTAGENE CILOLEUCEL
     Indication: Diffuse large B-cell lymphoma
     Dosage: UNK
     Route: 042
     Dates: start: 20211029, end: 20211029
  2. REGKIRONA [Concomitant]
  3. BENDAMUSTINE;OBINUTUZUMAB [Concomitant]

REACTIONS (7)
  - Disease progression [Fatal]
  - Drug ineffective [Unknown]
  - Hydronephrosis [Unknown]
  - Acute kidney injury [Unknown]
  - Tumour lysis syndrome [Unknown]
  - CD19 antigen loss [Unknown]
  - CD19 lymphocyte count abnormal [Unknown]
